FAERS Safety Report 23232871 (Version 2)
Quarter: 2023Q4

REPORT INFORMATION
  Report Type: Spontaneous
  Country: US (occurrence: US)
  Receive Date: 20231128
  Receipt Date: 20231201
  Transmission Date: 20240110
  Serious: Yes (Other)
  Sender: FDA-Public Use
  Company Number: US-BRISTOL-MYERS SQUIBB COMPANY-2023-168104

PATIENT
  Age: 79 Year
  Sex: Female
  Weight: 83 kg

DRUGS (1)
  1. ABECMA [Suspect]
     Active Substance: IDECABTAGENE VICLEUCEL
     Indication: Plasma cell myeloma
     Dates: start: 20230410

REACTIONS (12)
  - Fatigue [Unknown]
  - Malaise [Recovered/Resolved]
  - Tachycardia [Recovered/Resolved]
  - Hypoalbuminaemia [Recovered/Resolved]
  - Diarrhoea [Recovered/Resolved]
  - Aspartate aminotransferase increased [Unknown]
  - Decreased appetite [Unknown]
  - Alanine aminotransferase increased [Unknown]
  - Cytokine release syndrome [Recovered/Resolved]
  - Troponin increased [Recovered/Resolved]
  - Hypervolaemia [Recovered/Resolved]
  - Hyperbilirubinaemia [Unknown]

NARRATIVE: CASE EVENT DATE: 20230410
